FAERS Safety Report 9695665 (Version 7)
Quarter: 2015Q1

REPORT INFORMATION
  Report Type: Report from Study
  Country: FR (occurrence: FR)
  Receive Date: 20131119
  Receipt Date: 20150304
  Transmission Date: 20150721
  Serious: Yes (Death, Life-Threatening, Hospitalization)
  Sender: FDA-Public Use
  Company Number: FR-TEVA-444877USA

PATIENT
  Age: 67 Year
  Sex: Male

DRUGS (22)
  1. OSTEPAM [Concomitant]
     Dates: start: 20121005
  2. LOVENOX [Concomitant]
     Active Substance: ENOXAPARIN SODIUM
     Dates: start: 20121113
  3. PAMIDRONATE DISODIUM. [Concomitant]
     Active Substance: PAMIDRONATE DISODIUM
     Indication: PRODUCT USED FOR UNKNOWN INDICATION
  4. SOLUPRED [Concomitant]
     Active Substance: PREDNISOLONE
     Dates: start: 20120820
  5. ZYLORIC [Concomitant]
     Active Substance: ALLOPURINOL
     Dates: start: 20120820
  6. BENDAMUSTINE [Suspect]
     Active Substance: BENDAMUSTINE
     Indication: PLASMA CELL MYELOMA
     Route: 042
     Dates: start: 20120901, end: 20121003
  7. VELCADE [Suspect]
     Active Substance: BORTEZOMIB
     Indication: PLASMA CELL MYELOMA
     Dates: start: 20120522, end: 20120615
  8. AREDIA [Concomitant]
     Active Substance: PAMIDRONATE DISODIUM
     Dates: start: 20120820
  9. TENORMIN [Concomitant]
     Active Substance: ATENOLOL
     Dates: start: 20120820
  10. DEXAMETHASONE. [Suspect]
     Active Substance: DEXAMETHASONE
     Indication: PLASMA CELL MYELOMA
     Dates: start: 20120522, end: 20120615
  11. PREVISCAN [Concomitant]
     Active Substance: FLUINDIONE
     Dates: start: 20120820
  12. TAVANIC [Concomitant]
     Active Substance: LEVOFLOXACIN
     Dates: start: 20121115
  13. ALKERAN [Suspect]
     Active Substance: MELPHALAN
     Indication: PLASMA CELL MYELOMA
     Dates: start: 20120522, end: 20120615
  14. LEVOFLOXACIN. [Concomitant]
     Active Substance: LEVOFLOXACIN
     Indication: PRODUCT USED FOR UNKNOWN INDICATION
  15. OXYNORM [Concomitant]
     Active Substance: OXYCODONE HYDROCHLORIDE
     Dates: start: 20120820
  16. PARIET [Concomitant]
     Active Substance: RABEPRAZOLE SODIUM
     Dates: start: 20120820
  17. MOTILIUM [Concomitant]
     Active Substance: DOMPERIDONE
     Dates: start: 20120619
  18. LOXEN [Concomitant]
     Active Substance: NICARDIPINE HYDROCHLORIDE
     Dates: start: 20120820
  19. FENTANYL. [Concomitant]
     Active Substance: FENTANYL
     Dates: start: 20120820
  20. CORDARONE [Concomitant]
     Active Substance: AMIODARONE HYDROCHLORIDE
     Dates: start: 20121113
  21. ATENOLOL. [Concomitant]
     Active Substance: ATENOLOL
     Dates: start: 20120820
  22. CLAMOXYL [Concomitant]
     Active Substance: AMOXICILLIN\CLAVULANIC ACID
     Dates: start: 20121115

REACTIONS (3)
  - General physical health deterioration [Recovered/Resolved]
  - Atrial flutter [Recovered/Resolved]
  - Plasma cell myeloma [Fatal]

NARRATIVE: CASE EVENT DATE: 20121113
